FAERS Safety Report 6876767 (Version 2)
Quarter: 2015Q4

REPORT INFORMATION
  Report Type: Report from Study
  Country: US (occurrence: US)
  Receive Date: 20090109
  Receipt Date: 20151202
  Transmission Date: 20160305
  Serious: Yes (Hospitalization)
  Sender: FDA-Public Use
  Company Number: US-BIOGENIDEC-2009BI000499

PATIENT
  Age: 59 Year
  Sex: Female

DRUGS (3)
  1. AVONEX [Suspect]
     Active Substance: INTERFERON BETA-1A
     Indication: MULTIPLE SCLEROSIS
     Route: 030
     Dates: start: 200211
  2. AVONEX [Suspect]
     Active Substance: INTERFERON BETA-1A
     Indication: MULTIPLE SCLEROSIS
     Route: 030
     Dates: start: 201210, end: 201511
  3. AVONEX [Suspect]
     Active Substance: INTERFERON BETA-1A
     Indication: MULTIPLE SCLEROSIS
     Route: 030
     Dates: start: 200801, end: 201210

REACTIONS (9)
  - Neck surgery [Recovered/Resolved]
  - Crying [Unknown]
  - Scoliosis [Recovered/Resolved]
  - Diverticulitis [Recovered/Resolved]
  - Multiple sclerosis relapse [Unknown]
  - Balance disorder [Unknown]
  - Viral infection [Recovered/Resolved]
  - Chills [Unknown]
  - Night sweats [Unknown]

NARRATIVE: CASE EVENT DATE: 20081216
